FAERS Safety Report 7190260-9 (Version None)
Quarter: 2010Q4

REPORT INFORMATION
  Report Type: 
  Country: None (occurrence: None)
  Receive Date: 20101223
  Receipt Date: 20101210
  Transmission Date: 20110411
  Serious: Yes (Hospitalization)
  Sender: FDA-Public Use
  Company Number: PHHY2010CH83759

PATIENT
  Sex: Female

DRUGS (8)
  1. EXELON [Suspect]
     Indication: DEMENTIA
     Dosage: 1PATCH/DAY
     Route: 062
  2. DEPAKENE [Suspect]
     Indication: EPILEPSY
     Dosage: 1500 MG/DAY
     Dates: start: 19950101, end: 20101106
  3. KEPPRA [Suspect]
     Indication: EPILEPSY
     Dosage: 2250 MG/DAY
     Dates: start: 19950101
  4. NEXIUM [Suspect]
     Dosage: 40 MG/DAY
  5. CINNAGERON [Suspect]
     Dosage: 75 MG/DAY
  6. ELTROXIN [Suspect]
     Indication: HYPOTHYROIDISM
     Dosage: 0.05 MG/DAY
     Dates: start: 20090101
  7. VITAMIN D [Concomitant]
     Dosage: 4 GTTS/DAY
  8. LYRICA [Concomitant]

REACTIONS (15)
  - ANAEMIA [None]
  - ASTHENIA [None]
  - ATAXIA [None]
  - CACHEXIA [None]
  - CEREBELLAR SYNDROME [None]
  - EXTRAPYRAMIDAL DISORDER [None]
  - FALL [None]
  - FATIGUE [None]
  - GAIT DISTURBANCE [None]
  - GENERAL PHYSICAL HEALTH DETERIORATION [None]
  - HYPOALBUMINAEMIA [None]
  - PAIN IN EXTREMITY [None]
  - THROMBOCYTOPENIA [None]
  - TREMOR [None]
  - WEIGHT DECREASED [None]
